FAERS Safety Report 8329746-X (Version None)
Quarter: 2012Q2

REPORT INFORMATION
  Report Type: 
  Country: None (occurrence: None)
  Receive Date: 20120502
  Receipt Date: 20120428
  Transmission Date: 20120825
  Serious: Yes (Other)
  Sender: FDA-Public Use
  Company Number: US-BAYER-2012-042157

PATIENT

DRUGS (1)
  1. NAPROXEN SODIUM [Suspect]
     Route: 048

REACTIONS (1)
  - DELUSION [None]
